FAERS Safety Report 9298646 (Version 1)
Quarter: 2013Q2

REPORT INFORMATION
  Report Type: Spontaneous
  Country: GB (occurrence: GB)
  Receive Date: 20130520
  Receipt Date: 20130520
  Transmission Date: 20140414
  Serious: Yes (Life-Threatening)
  Sender: FDA-Public Use
  Company Number: US-ASTRAZENECA-2013SE34877

PATIENT
  Age: 16 Year
  Sex: 0

DRUGS (1)
  1. PROPOFOL [Suspect]
     Route: 065

REACTIONS (2)
  - Propofol infusion syndrome [Unknown]
  - Ventricular tachycardia [Unknown]
